FAERS Safety Report 23541862 (Version 1)
Quarter: 2024Q1

REPORT INFORMATION
  Report Type: Spontaneous
  Country: US (occurrence: US)
  Receive Date: 20240220
  Receipt Date: 20240220
  Transmission Date: 20240410
  Serious: Yes (Other)
  Sender: FDA-Public Use
  Company Number: US-ABBVIE-5641361

PATIENT
  Sex: Female

DRUGS (1)
  1. REFRESH OPTIVE [Suspect]
     Active Substance: CARBOXYMETHYLCELLULOSE SODIUM\GLYCERIN
     Indication: Product used for unknown indication
     Dosage: FORM STRENGTH: CMC 5MG/ML;GLYCERIN 9MG/ML
     Route: 047

REACTIONS (4)
  - Haemorrhage [Unknown]
  - Eye operation [Unknown]
  - Cataract [Unknown]
  - Retinal detachment [Unknown]
